FAERS Safety Report 10016670 (Version 1)
Quarter: 2014Q1

REPORT INFORMATION
  Report Type: Report from Study
  Country: US (occurrence: US)
  Receive Date: 20140317
  Receipt Date: 20140317
  Transmission Date: 20141002
  Serious: No
  Sender: FDA-Public Use
  Company Number: US-009507513-1403USA007528

PATIENT
  Sex: 0

DRUGS (2)
  1. HEXADROL TABLETS [Suspect]
     Dosage: UNK
     Route: 064
  2. HYDROXYCHLOROQUINE SULFATE [Concomitant]
     Route: 064

REACTIONS (2)
  - Electrocardiogram PR prolongation [Recovered/Resolved]
  - Foetal exposure during pregnancy [Recovered/Resolved]
